FAERS Safety Report 7729342-9 (Version None)
Quarter: 2011Q3

REPORT INFORMATION
  Report Type: 
  Country: None (occurrence: None)
  Receive Date: 20110906
  Receipt Date: 20110826
  Transmission Date: 20111222
  Serious: Yes (Other)
  Sender: FDA-Public Use
  Company Number: JP-ASTELLAS-2011US001540

PATIENT
  Sex: Female

DRUGS (4)
  1. AMBISOME [Suspect]
     Indication: MENINGITIS CRYPTOCOCCAL
     Dosage: 150 MG, UNKNOWN/D
     Route: 042
     Dates: start: 20110323, end: 20110512
  2. ACTEMRA [Concomitant]
     Indication: CASTLEMAN'S DISEASE
     Dosage: UNK
     Route: 042
     Dates: start: 20110301
  3. ANCOTIL [Concomitant]
     Indication: PRODUCT USED FOR UNKNOWN INDICATION
     Dosage: 3000 MG, UID/QD
     Route: 048
     Dates: start: 20110323
  4. FLUCONAZOLE [Concomitant]
     Indication: PRODUCT USED FOR UNKNOWN INDICATION
     Dosage: UNK
     Route: 042

REACTIONS (1)
  - RENAL TUBULAR ACIDOSIS [None]
